FAERS Safety Report 12736766 (Version 1)
Quarter: 2016Q3

REPORT INFORMATION
  Report Type: Report from Study
  Country: NL (occurrence: NL)
  Receive Date: 20160913
  Receipt Date: 20160913
  Transmission Date: 20161109
  Serious: Yes (Other)
  Sender: FDA-Public Use
  Company Number: PHHY2016NL124804

PATIENT
  Age: 85 Year
  Sex: Female

DRUGS (2)
  1. ZOMETA [Suspect]
     Active Substance: ZOLEDRONIC ACID
     Dosage: 1 UNK, 04 MG/100ML, 1 PER 12 WEEKS
     Route: 042
     Dates: start: 20160623
  2. ZOMETA [Suspect]
     Active Substance: ZOLEDRONIC ACID
     Indication: NEOPLASM MALIGNANT
     Dosage: 1 UNK, 04 MG/100ML, 1 PER 12 WEEKS
     Route: 042
     Dates: start: 20160310

REACTIONS (2)
  - Renal impairment [Unknown]
  - Inappropriate schedule of drug administration [Unknown]

NARRATIVE: CASE EVENT DATE: 20160909
